FAERS Safety Report 9261725 (Version 3)
Quarter: 2013Q4

REPORT INFORMATION
  Report Type: Spontaneous
  Country: BR (occurrence: BR)
  Receive Date: 20130429
  Receipt Date: 20131021
  Transmission Date: 20140711
  Serious: Yes (Hospitalization, Other)
  Sender: FDA-Public Use
  Company Number: BR-BRISTOL-MYERS SQUIBB COMPANY-18821728

PATIENT
  Age: 59 Year
  Sex: Female
  Weight: 70 kg

DRUGS (2)
  1. HYDREA [Suspect]
     Indication: ESSENTIAL THROMBOCYTHAEMIA
     Dosage: TABS
     Route: 048
  2. OMEPRAZOLE [Concomitant]

REACTIONS (8)
  - Thrombophlebitis [Unknown]
  - Diabetes mellitus [Unknown]
  - Drug dose omission [Unknown]
  - Weight increased [Unknown]
  - Pain in extremity [Unknown]
  - Labyrinthitis [Unknown]
  - Off label use [Unknown]
  - Memory impairment [Unknown]
